FAERS Safety Report 20788047 (Version 1)
Quarter: 2022Q2

REPORT INFORMATION
  Report Type: Report from Study
  Country: JP (occurrence: JP)
  Receive Date: 20220505
  Receipt Date: 20220505
  Transmission Date: 20220721
  Serious: Yes (Death, Life-Threatening, Hospitalization, Other)
  Sender: FDA-Public Use
  Company Number: JP-CELGENE-JPN-20220104370

PATIENT
  Sex: Male
  Weight: 76 kg

DRUGS (24)
  1. POMALIDOMIDE [Suspect]
     Active Substance: POMALIDOMIDE
     Indication: Plasma cell myeloma
     Route: 048
     Dates: start: 20210629, end: 20211201
  2. POMALIDOMIDE [Suspect]
     Active Substance: POMALIDOMIDE
     Route: 048
     Dates: start: 20211228, end: 20220112
  3. DEXAMETHASONE [Suspect]
     Active Substance: DEXAMETHASONE
     Indication: Plasma cell myeloma
     Route: 048
     Dates: start: 20210629, end: 20211201
  4. DEXAMETHASONE [Suspect]
     Active Substance: DEXAMETHASONE
     Route: 048
     Dates: start: 20211228, end: 20220112
  5. DARATUMUMAB [Suspect]
     Active Substance: DARATUMUMAB
     Indication: Plasma cell myeloma
     Route: 058
     Dates: start: 20210629, end: 20211201
  6. DARATUMUMAB [Suspect]
     Active Substance: DARATUMUMAB
     Route: 058
     Dates: start: 20211228, end: 20220112
  7. PRAVASTATIN SODIUM [Concomitant]
     Active Substance: PRAVASTATIN SODIUM
     Indication: Hyperlipidaemia
     Dosage: 10 MILLIGRAM
     Route: 048
     Dates: start: 20120101
  8. ACYCLOVIR [Concomitant]
     Active Substance: ACYCLOVIR
     Indication: Antiviral prophylaxis
     Dosage: 200 MILLIGRAM
     Route: 048
     Dates: start: 20181015
  9. DAIPHEN SULFAMETHOXAZOLE TRIMETHOPRIM [Concomitant]
     Indication: Prophylaxis
     Dosage: 400/80
     Route: 048
     Dates: start: 20181015
  10. ICOSAPENT ETHYL [Concomitant]
     Active Substance: ICOSAPENT ETHYL
     Indication: Hepatic steatosis
     Dosage: 1800 MILLIGRAM
     Route: 048
     Dates: start: 20191107
  11. FEBUXOSTAT [Concomitant]
     Active Substance: FEBUXOSTAT
     Indication: Hyperuricaemia
     Dosage: 20 MILLIGRAM
     Route: 048
     Dates: start: 20191219
  12. FEXOFENADINE HYDROCHLORIDE [Concomitant]
     Active Substance: FEXOFENADINE HYDROCHLORIDE
     Indication: Seasonal allergy
     Dosage: 120 MILLIGRAM
     Route: 048
     Dates: start: 20191226
  13. LUBIPROSTONE [Concomitant]
     Active Substance: LUBIPROSTONE
     Indication: Constipation
     Dosage: 24 MICROGRAM
     Route: 048
     Dates: start: 20200116
  14. SILODOSIN [Concomitant]
     Active Substance: SILODOSIN
     Indication: Benign prostatic hyperplasia
     Dosage: 8 MILLIGRAM
     Route: 048
     Dates: start: 20200430
  15. MIRABEGRON [Concomitant]
     Active Substance: MIRABEGRON
     Indication: Benign prostatic hyperplasia
     Dosage: 50 MILLIGRAM
     Route: 048
     Dates: start: 20210225
  16. TOARASET TRAMADOL HYDROCHLORAIDE,ACETAMINOPHEN [Concomitant]
     Indication: Stenosis
     Route: 048
  17. ASPIRIN [Concomitant]
     Active Substance: ASPIRIN
     Indication: Thrombosis prophylaxis
     Dosage: 100 MILLIGRAM
     Route: 048
     Dates: start: 20210629
  18. GARENOXACIN MESYLATE [Concomitant]
     Active Substance: GARENOXACIN MESYLATE
     Indication: Pneumonia
     Dosage: 400 MILLIGRAM
     Route: 048
     Dates: start: 20211019
  19. XARELTO OD TABLETS [Concomitant]
     Indication: Thrombosis prophylaxis
     Dosage: 15 MILLIGRAM
     Route: 048
     Dates: start: 20211221
  20. LANSOPRAZOLE [Concomitant]
     Active Substance: LANSOPRAZOLE
     Indication: Prophylaxis against gastrointestinal ulcer
     Dosage: 15 MILLIGRAM
     Route: 048
     Dates: start: 20120101
  21. LEVOFLOXACIN [Concomitant]
     Active Substance: LEVOFLOXACIN
     Indication: Infection prophylaxis
     Dosage: 500 MILLIGRAM
     Route: 048
     Dates: start: 20210713
  22. PREDNISOLONE [Concomitant]
     Active Substance: PREDNISOLONE
     Indication: Prophylaxis
     Dosage: 5 MILLIGRAM
     Route: 048
     Dates: start: 20210119
  23. FILGRASTIM [Concomitant]
     Active Substance: FILGRASTIM
     Indication: Neutropenia
     Dosage: FREQUENCY TEXT: NOT PROVIDED
     Route: 058
     Dates: start: 20211221, end: 20211221
  24. PFIZER-BIONTECH COVID-19 VACCINE [Concomitant]
     Active Substance: TOZINAMERAN
     Indication: COVID-19
     Dosage: FREQUENCY TEXT: NOT PROVIDED
     Route: 030
     Dates: start: 20210626, end: 20210626

REACTIONS (1)
  - Septic shock [Fatal]

NARRATIVE: CASE EVENT DATE: 20220112
